FAERS Safety Report 9359423 (Version 1)
Quarter: 2013Q2

REPORT INFORMATION
  Report Type: Spontaneous
  Country: FR (occurrence: FR)
  Receive Date: 20130620
  Receipt Date: 20130620
  Transmission Date: 20140414
  Serious: Yes (Disabling)
  Sender: FDA-Public Use
  Company Number: FR-PFIZER INC-2013183027

PATIENT
  Age: 54 Year
  Sex: Female

DRUGS (3)
  1. EFFEXOR [Suspect]
     Indication: DEPRESSION
     Dosage: 75 MG, 1X/DAY
     Route: 048
     Dates: start: 2007, end: 201210
  2. SEROPLEX [Concomitant]
     Dosage: 15 MG
     Dates: start: 201210
  3. PROZAC [Concomitant]
     Indication: DEPRESSION
     Dosage: 20 MG, 1X/DAY
     Route: 048
     Dates: start: 1993, end: 2007

REACTIONS (2)
  - Cardiomyopathy [Not Recovered/Not Resolved]
  - Atrioventricular block complete [Not Recovered/Not Resolved]
